FAERS Safety Report 14170338 (Version 1)
Quarter: 2017Q4

REPORT INFORMATION
  Report Type: Spontaneous
  Country: FR (occurrence: FR)
  Receive Date: 20171108
  Receipt Date: 20171108
  Transmission Date: 20180321
  Serious: Yes (Hospitalization)
  Sender: FDA-Public Use
  Company Number: FR-PFIZER INC-2017474631

PATIENT
  Age: 36 Year
  Sex: Female

DRUGS (5)
  1. DALACINE [Suspect]
     Active Substance: CLINDAMYCIN HYDROCHLORIDE
     Indication: ERYSIPELAS
     Dosage: 600 MG, 2X/DAY
     Route: 048
     Dates: start: 20170913, end: 20171004
  2. SPECIAFOLDINE [Suspect]
     Active Substance: FOLIC ACID
     Indication: ANAEMIA
     Dosage: 5 MG, 2X/DAY
     Route: 048
     Dates: start: 20170913, end: 20171004
  3. PARACETAMOL [Concomitant]
     Active Substance: ACETAMINOPHEN
     Dosage: UNK
     Dates: start: 201709
  4. MYCOSTATINE [Suspect]
     Active Substance: NYSTATIN
     Indication: PROPHYLAXIS
     Dosage: 10 ML, 4X/DAY
     Route: 048
     Dates: start: 20170913, end: 20171004
  5. TAZOCILLINE [Suspect]
     Active Substance: PIPERACILLIN SODIUM\TAZOBACTAM SODIUM
     Indication: ERYSIPELAS
     Dosage: 4 G, 3X/DAY
     Route: 042
     Dates: start: 20170913, end: 20171004

REACTIONS (4)
  - Cough [Recovered/Resolved]
  - Pyrexia [Recovered/Resolved]
  - Neutropenia [Recovered/Resolved]
  - Skin plaque [Recovered/Resolved]

NARRATIVE: CASE EVENT DATE: 20170928
